FAERS Safety Report 16559484 (Version 1)
Quarter: 2019Q3

REPORT INFORMATION
  Report Type: Spontaneous
  Country: US (occurrence: US)
  Receive Date: 20190710
  Receipt Date: 20190710
  Transmission Date: 20191004
  Serious: Yes (Death)
  Sender: FDA-Public Use
  Company Number: None

PATIENT
  Sex: Male

DRUGS (4)
  1. CYCLOSPORINE. [Suspect]
     Active Substance: CYCLOSPORINE
     Indication: CHRONIC KIDNEY DISEASE
     Route: 048
     Dates: start: 20170816
  2. SPIRONOLACT, VIT D3, LEVMIR [Concomitant]
  3. MULTI VIT, ULORIC, PREDNISONE, OMEPRAZOLE, LESCOL [Concomitant]
  4. AZATHIOPRINE. [Suspect]
     Active Substance: AZATHIOPRINE
     Indication: CHRONIC KIDNEY DISEASE
     Route: 048
     Dates: start: 20170816

REACTIONS (1)
  - Death [None]
